FAERS Safety Report 20196508 (Version 1)
Quarter: 2021Q4

REPORT INFORMATION
  Report Type: Spontaneous
  Country: US (occurrence: US)
  Receive Date: 20211216
  Receipt Date: 20211216
  Transmission Date: 20220304
  Serious: Yes (Hospitalization)
  Sender: FDA-Public Use
  Company Number: US-JNJFOC-20211214128

PATIENT
  Age: 60 Year
  Sex: Male
  Weight: 55 kg

DRUGS (3)
  1. TYLENOL [Suspect]
     Active Substance: ACETAMINOPHEN
     Indication: Haemorrhoids
     Dosage: ACETAMINOPHEN 8000 MG/DAY FOR 04 DAYS, TOTAL DOSE OF 32,000 MG
     Route: 048
     Dates: start: 20010823, end: 20010826
  2. IBUPROFEN [Suspect]
     Active Substance: IBUPROFEN
     Indication: Haemorrhoids
     Dosage: UNKNOWN DOSE (LOTS) FOR 04 DAYS
     Route: 048
     Dates: start: 20010823, end: 20010826
  3. LEVOFLOXACIN [Concomitant]
     Active Substance: LEVOFLOXACIN
     Indication: Product used for unknown indication
     Dosage: UNKNOWN
     Route: 065
     Dates: end: 20010827

REACTIONS (5)
  - Gastrointestinal haemorrhage [Recovered/Resolved]
  - Atelectasis [Recovered/Resolved]
  - Acute kidney injury [Recovered/Resolved]
  - Accidental overdose [Recovered/Resolved]
  - Acute hepatic failure [Recovered/Resolved]

NARRATIVE: CASE EVENT DATE: 20010828
